FAERS Safety Report 7328503 (Version 5)
Quarter: 2014Q2

REPORT INFORMATION
  Report Type: Spontaneous
  Country: US (occurrence: US)
  Receive Date: 20100323
  Receipt Date: 20140613
  Transmission Date: 20141212
  Serious: Yes (Other)
  Sender: FDA-Public Use
  Company Number: US-JNJFOC-20100304351

PATIENT
  Age: 63 Year
  Sex: Female
  Weight: 78.02 kg

DRUGS (9)
  1. REMICADE [Suspect]
     Indication: COLITIS ULCERATIVE
     Route: 042
     Dates: start: 20100312
  2. REMICADE [Suspect]
     Indication: COLITIS ULCERATIVE
     Route: 042
     Dates: start: 201001
  3. REMICADE [Suspect]
     Indication: COLITIS ULCERATIVE
     Route: 042
     Dates: start: 200901
  4. JANUVIA [Concomitant]
  5. ASA [Concomitant]
  6. ASACOL [Concomitant]
     Dosage: DOSE: 2 CAPSULES EVERY MEAL
  7. ENTOCORT [Concomitant]
  8. TRICOR [Concomitant]
     Indication: HYPERTENSION
  9. EZETIMIBE SIMVASTATIN [Concomitant]
     Indication: HYPERTENSION

REACTIONS (11)
  - Tremor [Recovered/Resolved]
  - Haematochezia [Not Recovered/Not Resolved]
  - Anaemia [Recovering/Resolving]
  - Infusion related reaction [Not Recovered/Not Resolved]
  - Mucous stools [Not Recovered/Not Resolved]
  - Ecchymosis [Recovering/Resolving]
  - Feeling of body temperature change [Not Recovered/Not Resolved]
  - Dysphonia [Not Recovered/Not Resolved]
  - Weight increased [Not Recovered/Not Resolved]
  - Myalgia [Recovering/Resolving]
  - Pain in extremity [Recovering/Resolving]
